FAERS Safety Report 6757700-8 (Version None)
Quarter: 2010Q2

REPORT INFORMATION
  Report Type: 
  Country: None (occurrence: None)
  Receive Date: 20100607
  Receipt Date: 20100601
  Transmission Date: 20101027
  Serious: Yes (Life-Threatening, Hospitalization)
  Sender: FDA-Public Use
  Company Number: JP-NOVOPROD-305429

PATIENT
  Age: 77 Year
  Sex: Female
  Weight: 63 kg

DRUGS (8)
  1. NOVORAPID CHU PENFILL [Suspect]
     Indication: TYPE 2 DIABETES MELLITUS
     Dosage: 6 U BEFORE BREAKFAST
     Route: 058
     Dates: start: 20100307, end: 20100311
  2. NOVOLIN R [Suspect]
     Indication: TYPE 2 DIABETES MELLITUS
     Dosage: SLIDING SCALE WHEN BG IS OVER 150MG/DL
     Dates: start: 20100220
  3. PLETAL [Suspect]
     Dosage: 400 MG, QD
     Route: 048
     Dates: start: 20100309
  4. PLAVIX [Suspect]
     Dosage: 100 MG, QD
     Route: 048
     Dates: start: 20100309
  5. PRODIF [Suspect]
     Dosage: 50 MG, QD
     Route: 042
     Dates: start: 20100305, end: 20100305
  6. NORVASC [Concomitant]
     Dosage: 5 MG, QD
     Route: 048
     Dates: end: 20100315
  7. MICARDIS [Concomitant]
     Dosage: 40 MG, QD
     Route: 048
     Dates: end: 20100315
  8. TRIZOLE [Concomitant]
     Dosage: 200 MG, QD
     Route: 048
     Dates: start: 20100227, end: 20100304

REACTIONS (1)
  - NEUTROPHIL COUNT DECREASED [None]
